FAERS Safety Report 7906175-1 (Version None)
Quarter: 2011Q4

REPORT INFORMATION
  Report Type: 
  Country: None (occurrence: None)
  Receive Date: 20111109
  Receipt Date: 20111109
  Transmission Date: 20120403
  Serious: No
  Sender: FDA-Public Use
  Company Number: None

PATIENT
  Sex: Male
  Weight: 96.1626 kg

DRUGS (1)
  1. OXCARBAZEPINE [Suspect]
     Indication: CONVULSION
     Dosage: 600MG TWICE DAILY
     Dates: start: 20111102

REACTIONS (8)
  - ULCER [None]
  - TREMOR [None]
  - THINKING ABNORMAL [None]
  - ASTHENIA [None]
  - BLISTER [None]
  - FATIGUE [None]
  - DERMATITIS [None]
  - PRURITUS [None]
